FAERS Safety Report 16361045 (Version 1)
Quarter: 2019Q2

REPORT INFORMATION
  Report Type: Report from Study
  Country: US (occurrence: US)
  Receive Date: 20190528
  Receipt Date: 20190528
  Transmission Date: 20190711
  Serious: Yes (Other)
  Sender: FDA-Public Use
  Company Number: US-GILEAD-2019-0409586

PATIENT
  Age: 80 Year
  Sex: Male

DRUGS (3)
  1. UPTRAVI [Concomitant]
     Active Substance: SELEXIPAG
  2. AMBRISENTAN [Suspect]
     Active Substance: AMBRISENTAN
     Indication: PULMONARY ARTERIAL HYPERTENSION
     Dosage: 10 MG, QD
     Route: 065
     Dates: start: 20161221
  3. OXYGEN. [Concomitant]
     Active Substance: OXYGEN

REACTIONS (4)
  - Dyspnoea [Not Recovered/Not Resolved]
  - Oxygen saturation decreased [Unknown]
  - Intra-abdominal fluid collection [Unknown]
  - Heart rate increased [Unknown]
